FAERS Safety Report 16695138 (Version 2)
Quarter: 2019Q4

REPORT INFORMATION
  Report Type: Spontaneous
  Country: FR (occurrence: FR)
  Receive Date: 20190813
  Receipt Date: 20191004
  Transmission Date: 20200122
  Serious: Yes (Life-Threatening)
  Sender: FDA-Public Use
  Company Number: FR-ZYDUS-039620

PATIENT
  Age: 85 Year
  Sex: Male
  Weight: 75 kg

DRUGS (11)
  1. EPLERENONE. [Suspect]
     Active Substance: EPLERENONE
     Indication: POISONING DELIBERATE
     Dosage: QUANTITY SUPPOSED TO BE INGESTED: 4 CP; IN TOTAL
     Route: 048
     Dates: start: 20190701
  2. MELATONINE [Suspect]
     Active Substance: MELATONIN
     Indication: POISONING DELIBERATE
     Dosage: QUANTITY SUPPOSED TO BE INGESTED: 4 TIMES 12 MG; IN TOTAL
     Route: 048
     Dates: start: 20190701
  3. BISOPROLOL [Suspect]
     Active Substance: BISOPROLOL
     Indication: POISONING DELIBERATE
     Route: 048
     Dates: start: 20190701
  4. ESOMEPRAZOLE. [Suspect]
     Active Substance: ESOMEPRAZOLE MAGNESIUM
     Indication: POISONING DELIBERATE
     Dosage: QUANTITY SUPPOSED TO BE INGESTED: 4 TABLETS OF 20 MG; IN TOTAL
     Route: 048
     Dates: start: 20190701
  5. ACETYLSALICYLATE LYSINE/ACETYLSALICYLIC ACID [Suspect]
     Active Substance: ASPIRIN DL-LYSINE
     Indication: POISONING DELIBERATE
     Dosage: INTENDED DOSE INGESTED 4 SACHETS OF 75 MG; IN TOTAL
     Route: 048
     Dates: start: 20190701
  6. ZOPICLONE [Suspect]
     Active Substance: ZOPICLONE
     Indication: POISONING DELIBERATE
     Dosage: QUANTITY SUPPOSED TO BE INGESTED: 4 TIMES 7.5 MG; IN TOTAL
     Route: 048
     Dates: start: 20190701
  7. LEVOTHYROXINE. [Suspect]
     Active Substance: LEVOTHYROXINE
     Indication: POISONING DELIBERATE
     Dosage: INTENDED AMOUNT INGESTED 4 X 125 UG
     Route: 048
  8. RAMIPRIL. [Suspect]
     Active Substance: RAMIPRIL
     Indication: POISONING DELIBERATE
     Route: 048
     Dates: start: 20190701
  9. MIANSERIN/MIANSERIN HYDROCHLORIDE [Suspect]
     Active Substance: MIANSERIN\MIANSERIN HYDROCHLORIDE
     Indication: POISONING DELIBERATE
     Dosage: QUANTITY SUPPOSED TO BE INGESTED: 4 TABLETS OF 30 MG; IN TOTAL
     Route: 048
     Dates: start: 20190701
  10. ATORVASTATIN [Suspect]
     Active Substance: ATORVASTATIN
     Indication: POISONING DELIBERATE
     Dosage: IN TOTAL
     Route: 048
     Dates: start: 20190701
  11. AMIODARONE [Suspect]
     Active Substance: AMIODARONE
     Indication: POISONING DELIBERATE
     Dosage: QUANTITY PRESUMED TO BE INGESTED 4 CP OF 200 MG; IN TOTAL
     Route: 048
     Dates: start: 20190701

REACTIONS (5)
  - Cardiogenic shock [Recovered/Resolved]
  - Overdose [Unknown]
  - Poisoning deliberate [Recovered/Resolved]
  - Bradycardia [Recovered/Resolved]
  - Hypoglycaemia [Recovered/Resolved]

NARRATIVE: CASE EVENT DATE: 20190701
